FAERS Safety Report 7618000-7 (Version None)
Quarter: 2011Q3

REPORT INFORMATION
  Report Type: 
  Country: None (occurrence: None)
  Receive Date: 20110718
  Receipt Date: 20110711
  Transmission Date: 20111222
  Serious: Yes (Death, Other)
  Sender: FDA-Public Use
  Company Number: PHHY2011US61816

PATIENT
  Sex: Female
  Weight: 61 kg

DRUGS (11)
  1. LANTUS [Concomitant]
  2. KAYEXALATE [Concomitant]
  3. DEXTROSE [Concomitant]
  4. VITAMIN D [Concomitant]
     Dosage: 50000 U, MONTHLY
  5. LIDODERM [Concomitant]
  6. VICODIN [Concomitant]
  7. INDERAL LA [Concomitant]
     Dosage: 120 MG, UNK
  8. ASPIRIN [Concomitant]
     Dosage: 81 MG, UNK
  9. EXJADE [Suspect]
     Indication: IRON OVERLOAD
  10. LEVOTHYROXINE SODIUM [Concomitant]
  11. OMEPRAZOLE [Concomitant]
     Dosage: 20 MG, UNK

REACTIONS (21)
  - BLOOD CREATININE INCREASED [None]
  - ASPARTATE AMINOTRANSFERASE INCREASED [None]
  - URINARY TRACT INFECTION [None]
  - MALAISE [None]
  - HYPERTENSION [None]
  - RENAL CYST [None]
  - CONTUSION [None]
  - MYALGIA [None]
  - FALL [None]
  - BACK PAIN [None]
  - BLOOD BILIRUBIN INCREASED [None]
  - BLOOD UREA INCREASED [None]
  - HEPATIC FAILURE [None]
  - ALANINE AMINOTRANSFERASE INCREASED [None]
  - HYPOKALAEMIA [None]
  - EXCORIATION [None]
  - ATRIOVENTRICULAR BLOCK FIRST DEGREE [None]
  - NAUSEA [None]
  - RENAL FAILURE ACUTE [None]
  - BLOOD ALKALINE PHOSPHATASE INCREASED [None]
  - DECREASED APPETITE [None]
